FAERS Safety Report 23401900 (Version 2)
Quarter: 2024Q1

REPORT INFORMATION
  Report Type: Report from Study
  Country: MY (occurrence: None)
  Receive Date: 20240115
  Receipt Date: 20240223
  Transmission Date: 20240409
  Serious: Yes (Death)
  Sender: FDA-Public Use
  Company Number: 2024A010651

PATIENT
  Age: 958 Month
  Sex: Male

DRUGS (1)
  1. IMFINZI [Suspect]
     Active Substance: DURVALUMAB
     Dosage: 620.0MG UNKNOWN
     Route: 042
     Dates: start: 20230523, end: 202305

REACTIONS (1)
  - Death [Fatal]

NARRATIVE: CASE EVENT DATE: 20230501
